FAERS Safety Report 7990725-3 (Version None)
Quarter: 2011Q4

REPORT INFORMATION
  Report Type: 
  Country: None (occurrence: None)
  Receive Date: 20111219
  Receipt Date: 20111214
  Transmission Date: 20120403
  Serious: No
  Sender: FDA-Public Use
  Company Number: US-BAYER-2011-121095

PATIENT
  Age: 87 Year
  Sex: Female
  Weight: 58 kg

DRUGS (5)
  1. CENTRUM SILVER [Concomitant]
  2. ALEVE (CAPLET) [Suspect]
     Indication: ARTHRITIS
     Dosage: 2 DF, UNK
     Route: 048
     Dates: start: 20111214, end: 20111214
  3. ASPIRIN [Concomitant]
  4. CALAN [Concomitant]
  5. PAIN SHOT [Concomitant]

REACTIONS (2)
  - HEADACHE [None]
  - ARTHRALGIA [None]
